FAERS Safety Report 6588993-8 (Version None)
Quarter: 2010Q1

REPORT INFORMATION
  Report Type: 
  Country: None (occurrence: None)
  Receive Date: 20100218
  Receipt Date: 20100209
  Transmission Date: 20100710
  Serious: Yes (Death)
  Sender: FDA-Public Use
  Company Number: US-ROXANE LABORATORIES, INC.-2010-DE-00870GD

PATIENT
  Age: 53 Year
  Sex: Male

DRUGS (6)
  1. PARACETAMOL [Suspect]
     Route: 048
  2. MORPHINE SULFATE [Suspect]
     Route: 048
  3. PHENOBARBITAL TAB [Suspect]
     Route: 048
  4. HYDROMORPHONE HYDROCHLORIDE [Suspect]
     Route: 048
  5. CARISOPRODOL [Suspect]
     Route: 048
  6. DIPHENOXYLATE HCL + ATROPINE SULFATE [Suspect]
     Route: 048

REACTIONS (2)
  - COMPLETED SUICIDE [None]
  - DRUG ABUSE [None]
